FAERS Safety Report 10268781 (Version 1)
Quarter: 2014Q2

REPORT INFORMATION
  Report Type: Report from Study
  Country: US (occurrence: US)
  Receive Date: 20140630
  Receipt Date: 20140630
  Transmission Date: 20141212
  Serious: Yes (Hospitalization)
  Sender: FDA-Public Use
  Company Number: US-GLAXOSMITHKLINE-A1077203A

PATIENT
  Age: 44 Year
  Sex: Female

DRUGS (11)
  1. DABRAFENIB [Suspect]
     Indication: THYROID CANCER
     Dosage: 100MG TWICE PER DAY
     Route: 048
     Dates: start: 20140514
  2. PAZOPANIB [Suspect]
     Indication: THYROID CANCER
     Dosage: 800MG PER DAY
     Route: 048
     Dates: start: 20140610
  3. ACETAMINOPHEN EXTRA STRENGTH [Concomitant]
     Dosage: 1000MG AS REQUIRED
     Route: 048
  4. ALPRAZOLAM [Concomitant]
     Dosage: .25MG THREE TIMES PER DAY
     Route: 048
  5. MORPHINE [Concomitant]
     Indication: PAIN
     Dosage: 30MG AS REQUIRED
     Route: 048
  6. MORPHINE [Concomitant]
     Indication: PAIN
     Dosage: 15MG AS REQUIRED
     Route: 048
  7. GABAPENTIN [Concomitant]
     Dosage: 300MG THREE TIMES PER DAY
     Route: 048
  8. LEVOTHYROXINE SODIUM [Concomitant]
     Dosage: 300MG TWICE PER DAY
     Route: 048
  9. ADDERALL [Concomitant]
     Dosage: 20MG TWICE PER DAY
     Route: 048
  10. STRATTERA [Concomitant]
     Dosage: 100MG PER DAY
     Route: 048
  11. FLUTICASONE [Concomitant]
     Dosage: 100MGG FOUR TIMES PER DAY
     Route: 055

REACTIONS (7)
  - Pyrexia [Recovered/Resolved]
  - Dehydration [Unknown]
  - White blood cell count decreased [Unknown]
  - Anaemia [Unknown]
  - Alanine aminotransferase increased [Recovering/Resolving]
  - Aspartate aminotransferase increased [Recovering/Resolving]
  - Malignant melanoma [Unknown]
